FAERS Safety Report 8485208-0 (Version None)
Quarter: 2012Q3

REPORT INFORMATION
  Report Type: 
  Country: None (occurrence: None)
  Receive Date: 20120703
  Receipt Date: 20120619
  Transmission Date: 20120928
  Serious: Yes (Life-Threatening, Hospitalization, Other)
  Sender: FDA-Public Use
  Company Number: NL-US-EMD SERONO, INC.-230010M10NLD

PATIENT
  Sex: Male
  Weight: 94 kg

DRUGS (13)
  1. ARTHROTEC [Concomitant]
     Indication: PRODUCT USED FOR UNKNOWN INDICATION
     Dates: start: 20091001
  2. CLOPIDOGREL [Concomitant]
     Indication: MYOCARDIAL INFARCTION
     Route: 048
     Dates: start: 20110901
  3. PREDNISOLONE [Concomitant]
     Indication: PRODUCT USED FOR UNKNOWN INDICATION
     Dates: start: 20091102, end: 20091107
  4. ACETYLSALICYLZUUR [Concomitant]
     Indication: MYOCARDIAL INFARCTION
     Route: 048
     Dates: start: 20110901
  5. METOPROLOL SUCCINAAT (METOPROLOL) [Concomitant]
     Indication: MYOCARDIAL INFARCTION
     Route: 048
     Dates: start: 20110901
  6. PANTOPRAZOL (PANTOPRAZOLE) [Concomitant]
     Indication: MYOCARDIAL INFARCTION
     Route: 048
     Dates: start: 20110901
  7. ROSUVASTATINE (ROSUVASTATIN) [Concomitant]
     Indication: MYOCARDIAL INFARCTION
     Route: 048
     Dates: start: 20110901
  8. ACETAMINOPHEN [Concomitant]
     Indication: UNEVALUABLE EVENT
     Route: 048
     Dates: start: 20080101
  9. NITROLINGUAL [Concomitant]
     Indication: PRODUCT USED FOR UNKNOWN INDICATION
     Dates: start: 20080205, end: 20091015
  10. OXAZEPAM [Concomitant]
     Indication: UNEVALUABLE EVENT
     Route: 048
     Dates: start: 20081219, end: 20090103
  11. NAPROXEN [Concomitant]
     Indication: UNEVALUABLE EVENT
     Dates: start: 20080101
  12. REBIF [Suspect]
     Indication: MULTIPLE SCLEROSIS
     Route: 058
     Dates: start: 20080101
  13. ISOSORBIDEMONONITRAAT [Concomitant]
     Indication: MYOCARDIAL INFARCTION
     Route: 048
     Dates: start: 20110901

REACTIONS (7)
  - INFLUENZA LIKE ILLNESS [None]
  - LOSS OF CONSCIOUSNESS [None]
  - INJECTION SITE REACTION [None]
  - INJECTION SITE ERYTHEMA [None]
  - MUSCLE SPASMS [None]
  - MYOCARDIAL INFARCTION [None]
  - INJECTION SITE INDURATION [None]
